FAERS Safety Report 5440914-7 (Version None)
Quarter: 2007Q3

REPORT INFORMATION
  Report Type: 
  Country: None (occurrence: None)
  Receive Date: 20070831
  Receipt Date: 20051201
  Transmission Date: 20080115
  Serious: Yes (Hospitalization)
  Sender: FDA-Public Use
  Company Number: US-PFIZER INC-2004194418US

PATIENT
  Sex: Female
  Weight: 71.7 kg

DRUGS (7)
  1. CELECOXIB [Suspect]
     Indication: COLORECTAL CANCER METASTATIC
     Route: 048
  2. CAMPTOSAR [Suspect]
     Indication: COLORECTAL CANCER METASTATIC
     Route: 042
  3. CALCIUM FOLINATE [Suspect]
     Indication: COLORECTAL CANCER METASTATIC
     Route: 042
  4. FLUOROURACIL [Suspect]
     Indication: COLORECTAL CANCER METASTATIC
     Route: 042
  5. LOPERAMIDE HCL [Concomitant]
     Indication: DIARRHOEA
     Route: 065
  6. LOMOTIL [Concomitant]
     Indication: DIARRHOEA
     Route: 065
  7. NEUPOGEN [Concomitant]
     Indication: NEUTROPENIA
     Route: 065

REACTIONS (15)
  - ADRENAL INSUFFICIENCY [None]
  - ANAEMIA [None]
  - COLITIS [None]
  - CONFUSIONAL STATE [None]
  - DEHYDRATION [None]
  - DIARRHOEA [None]
  - DRUG HYPERSENSITIVITY [None]
  - FEBRILE NEUTROPENIA [None]
  - GASTROINTESTINAL DISORDER [None]
  - HYPERSENSITIVITY [None]
  - HYPOKALAEMIA [None]
  - HYPONATRAEMIA [None]
  - HYPOTENSION [None]
  - METASTASES TO LIVER [None]
  - REACTION TO FOOD ADDITIVE [None]
